FAERS Safety Report 20581362 (Version 7)
Quarter: 2025Q1

REPORT INFORMATION
  Report Type: Spontaneous
  Country: DE (occurrence: DE)
  Receive Date: 20220311
  Receipt Date: 20250118
  Transmission Date: 20250409
  Serious: Yes (Hospitalization, Other)
  Sender: AUROBINDO
  Company Number: DE-Accord-254391

PATIENT
  Age: 30 Year
  Sex: Female

DRUGS (3)
  1. VORICONAZOLE [Suspect]
     Active Substance: VORICONAZOLE
     Indication: Bronchopulmonary aspergillosis
     Route: 065
  2. VORICONAZOLE [Suspect]
     Active Substance: VORICONAZOLE
     Indication: Cerebral aspergillosis
  3. VORICONAZOLE [Suspect]
     Active Substance: VORICONAZOLE
     Indication: Aspergillus infection

REACTIONS (9)
  - Synovitis [Recovered/Resolved]
  - Periostitis [Recovered/Resolved]
  - Enthesopathy [Recovered/Resolved]
  - Arthritis [Recovered/Resolved]
  - Polyarthritis [Recovered/Resolved]
  - Enthesopathy [Unknown]
  - Toxicity to various agents [Recovered/Resolved]
  - Blood alkaline phosphatase increased [Recovered/Resolved]
  - Fluoride increased [Recovered/Resolved]
